FAERS Safety Report 24233587 (Version 1)
Quarter: 2024Q3

REPORT INFORMATION
  Report Type: Spontaneous
  Country: US (occurrence: US)
  Receive Date: 20240821
  Receipt Date: 20240821
  Transmission Date: 20241017
  Serious: No
  Sender: PERRIGO
  Company Number: US-PERRIGO-23US010934

PATIENT
  Age: 39 Year
  Sex: Female
  Weight: 90.794 kg

DRUGS (11)
  1. MINOXIDIL [Suspect]
     Active Substance: MINOXIDIL
     Indication: Alopecia
     Dosage: 1 DROPPER, SINGLE
     Route: 061
     Dates: start: 20230905, end: 20230905
  2. TRULICITY [Concomitant]
     Active Substance: DULAGLUTIDE
     Indication: Product used for unknown indication
     Dosage: 0.75MG/0.5ML AS DIRECTED
     Route: 058
  3. ATORVASTATIN CALCIUM [Concomitant]
     Active Substance: ATORVASTATIN CALCIUM
     Indication: Product used for unknown indication
     Dosage: 10 MG, QD
     Route: 048
  4. GLUCOTROL XL [Concomitant]
     Active Substance: GLIPIZIDE
     Indication: Product used for unknown indication
     Dosage: 5 MG, QD WITH FOOD
     Route: 048
  5. METFORMIN [Concomitant]
     Active Substance: METFORMIN HYDROCHLORIDE
     Indication: Product used for unknown indication
     Dosage: 500 MG, BID WITH A MEAL
     Route: 048
  6. FLONASE [Concomitant]
     Active Substance: FLUTICASONE PROPIONATE
     Indication: Product used for unknown indication
     Dosage: 1 SPRAY IN EACH NOSTRIL, QD
     Route: 045
  7. ERGOCALCIFEROL [Concomitant]
     Active Substance: ERGOCALCIFEROL
     Indication: Product used for unknown indication
     Dosage: 1.25 MG, QWEEK
     Route: 048
  8. BUDESONIDE [Concomitant]
     Active Substance: BUDESONIDE
     Indication: Product used for unknown indication
     Dosage: 1 SPRAY EACH NOSTRIL, QD
     Route: 045
  9. CYMBALTA [Concomitant]
     Active Substance: DULOXETINE HYDROCHLORIDE
     Indication: Product used for unknown indication
     Dosage: 60 MG, QD
     Route: 048
  10. CLOTRIMAZOLE [Concomitant]
     Active Substance: CLOTRIMAZOLE
     Indication: Product used for unknown indication
     Dosage: 1 APPLICATION, BID
     Route: 061
  11. PANTOPRAZOLE [Concomitant]
     Active Substance: PANTOPRAZOLE
     Indication: Gastrooesophageal reflux disease
     Dosage: 40 MG, QD
     Route: 048
     Dates: start: 20230907

REACTIONS (7)
  - Swelling face [Recovered/Resolved]
  - Lip swelling [Recovered/Resolved]
  - Alopecia [Not Recovered/Not Resolved]
  - Ear pruritus [Recovering/Resolving]
  - Application site pruritus [Recovering/Resolving]
  - Headache [Recovering/Resolving]
  - Expired product administered [Unknown]

NARRATIVE: CASE EVENT DATE: 20230905
